FAERS Safety Report 8773736 (Version 2)
Quarter: 2013Q1

REPORT INFORMATION
  Report Type: Report from Study
  Country: JP (occurrence: JP)
  Receive Date: 20120907
  Receipt Date: 20130121
  Transmission Date: 20140127
  Serious: Yes (Hospitalization)
  Sender: FDA-Public Use
  Company Number: JP-AMGEN-JPNCT2012056505

PATIENT
  Age: 38 Year
  Sex: Male
  Weight: 62 kg

DRUGS (8)
  1. ROMIPLOSTIM - KHK [Suspect]
     Indication: IDIOPATHIC THROMBOCYTOPENIC PURPURA
     Dosage: 1 MUG, QWK
     Route: 058
     Dates: start: 20110818
  2. ROMIPLOSTIM - KHK [Suspect]
     Dosage: 2 MUG, QD
     Route: 058
     Dates: start: 20110901
  3. ROMIPLOSTIM - KHK [Suspect]
     Dosage: 4 MUG, QWK
     Route: 058
     Dates: start: 20110908, end: 20111124
  4. REVOLADE [Concomitant]
     Indication: IDIOPATHIC THROMBOCYTOPENIC PURPURA
     Dosage: 37.5 MG, UNK
     Route: 048
     Dates: start: 20110127, end: 20110817
  5. FOSAMAC [Concomitant]
     Indication: OSTEOPOROSIS
     Dosage: 5 MG, UNK
     Route: 048
  6. GASTER D [Concomitant]
     Indication: GASTRITIS
     Dosage: UNK
     Route: 048
  7. MUCOSTA [Concomitant]
     Indication: GASTRITIS
     Dosage: UNK
     Route: 065
  8. BENET [Concomitant]
     Indication: OSTEOPOROSIS
     Dosage: UNK
     Route: 048

REACTIONS (3)
  - Platelet count decreased [Recovered/Resolved]
  - Purpura [Recovering/Resolving]
  - Leukocytosis [Recovered/Resolved]
